FAERS Safety Report 8265753-3 (Version None)
Quarter: 2012Q2

REPORT INFORMATION
  Report Type: 
  Country: None (occurrence: None)
  Receive Date: 20120403
  Receipt Date: 20120321
  Transmission Date: 20120825
  Serious: Yes (Other)
  Sender: FDA-Public Use
  Company Number: DSJ-2012-00221

PATIENT
  Age: 68 Year
  Sex: Female

DRUGS (5)
  1. ASPIRIN [Suspect]
     Dates: end: 20110801
  2. BENICAR ANLO (OLMESARTAN MEDOXOMIL, AMLODIPINE BESILATE) (TABLET) (OLM [Suspect]
     Indication: HYPERTENSION
     Dosage: 20/5 MG (1 IN 1 D),PER ORAL
     Route: 048
     Dates: start: 20080101, end: 20110801
  3. BENICAR ANLO (OLMESARTAN MEDOXOMIL, AMLODIPINE BESILATE) (TABLET) (OLM [Suspect]
     Indication: HYPERTENSION
     Dosage: 20/5 MG (1 IN 1 D),PER ORAL
     Route: 048
     Dates: start: 20111113
  4. ORPHENADRINE/METAMIZOLE/CAFFEINE [Suspect]
     Dosage: 35/300/50 MG,
     Dates: end: 20110801
  5. SIMVASTATIN [Concomitant]

REACTIONS (8)
  - HYPERSENSITIVITY [None]
  - VITAMIN D DEFICIENCY [None]
  - INFLUENZA [None]
  - CATARACT [None]
  - DRUG INEFFECTIVE [None]
  - PALLOR [None]
  - DRUG ADMINISTRATION ERROR [None]
  - NASOPHARYNGITIS [None]
